FAERS Safety Report 8570333-6 (Version None)
Quarter: 2012Q3

REPORT INFORMATION
  Report Type: 
  Country: None (occurrence: None)
  Receive Date: 20120803
  Receipt Date: 20120726
  Transmission Date: 20120928
  Serious: Yes (Disabling, Other)
  Sender: FDA-Public Use
  Company Number: GB-B.I. PHARMACEUTICALS,INC./RIDGEFIELD-2012-UK-00988UK

PATIENT
  Age: 71 Year
  Sex: Female
  Weight: 70 kg

DRUGS (3)
  1. FLECAINIDE ACETATE [Concomitant]
     Indication: HEART RATE IRREGULAR
     Dosage: 200 MG
     Route: 048
     Dates: start: 20070719
  2. PRADAXA [Suspect]
     Dosage: 300 MG
     Route: 048
     Dates: start: 20111124, end: 20120130
  3. PRADAXA [Suspect]
     Dosage: 150 MG
     Route: 048
     Dates: start: 20120130, end: 20120619

REACTIONS (7)
  - IRRITABILITY [None]
  - MEMORY IMPAIRMENT [None]
  - FATIGUE [None]
  - DISTURBANCE IN ATTENTION [None]
  - FEELING ABNORMAL [None]
  - BALANCE DISORDER [None]
  - DEREALISATION [None]
